FAERS Safety Report 11703477 (Version 1)
Quarter: 2015Q4

REPORT INFORMATION
  Report Type: Spontaneous
  Country: US (occurrence: US)
  Receive Date: 20151105
  Receipt Date: 20151105
  Transmission Date: 20160304
  Serious: No
  Sender: FDA-Public Use
  Company Number: US-ANACOR-2015ANA00147

PATIENT
  Sex: Female
  Weight: 60.32 kg

DRUGS (3)
  1. KERYDIN [Suspect]
     Active Substance: TAVABOROLE
     Indication: ONYCHOMYCOSIS
     Dosage: 1 GTT, 1X/DAY
     Route: 061
  2. VITAMINS [Concomitant]
     Active Substance: VITAMINS
  3. UNSPECIFIED THYROID MEDICATION [Concomitant]
     Active Substance: UNSPECIFIED INGREDIENT

REACTIONS (2)
  - Application site pain [Not Recovered/Not Resolved]
  - Drug ineffective [Not Recovered/Not Resolved]
